FAERS Safety Report 9549697 (Version 1)
Quarter: 2013Q3

REPORT INFORMATION
  Report Type: Spontaneous
  Country: US (occurrence: None)
  Receive Date: 20130719
  Receipt Date: 20130719
  Transmission Date: 20140515
  Serious: Yes (Hospitalization)
  Sender: FDA-Public Use
  Company Number: 2012BAX023513

PATIENT
  Age: 13 Year
  Sex: Male

DRUGS (10)
  1. CYTOXAN [Suspect]
     Indication: ACUTE LYMPHOCYTIC LEUKAEMIA
     Dosage: (13.3 MG, WEEK 1, DAY 1 AND WEEK 4, DAY 28, INTRAVENOUS
     Route: 042
     Dates: start: 20120917, end: 20121014
  2. DASATINIB [Suspect]
     Indication: ACUTE LYMPHOCYTIC LEUKAEMIA
     Dosage: 80 MG (80 MG, 1 IN 1 D) , ORAL
     Dates: start: 20120822
  3. ARA-C [Suspect]
     Indication: ACUTE LYMPHOCYTIC LEUKAEMIA
     Dosage: (100 MG, 4 DAYS WEEKLY), INTRAVENOUS
     Route: 042
     Dates: start: 20120919, end: 20121013
  4. 6-MERCAPTOPURINE [Suspect]
     Indication: ACUTE LYMPHOCYTIC LEUKAEMIA
     Dosage: 86 (UNITS NOT PROVIDED) (1 DOSAGE FORMS), ORAL
     Dates: start: 20120917, end: 20121014
  5. METHOTREXATE [Suspect]
     Indication: PRODUCT USED FOR UNKNOWN INDICATION
     Dosage: (6650 MG), INTRAVENOUS
     Route: 042
     Dates: start: 20121108, end: 20121109
  6. VINCRISTINE SULFATE [Suspect]
     Indication: PRODUCT USED FOR UNKNOWN INDICATION
     Dosage: (3325 IU) , INTRAVENOUS
     Route: 042
     Dates: start: 20121109
  7. PEGASPARAGASE [Suspect]
     Indication: PRODUCT USED FOR UNKNOWN INDICATION
  8. BACTRIM (SULFAMETHOXAZOLE TRIMETHOPRIM) [Concomitant]
  9. NYSTATIN ORAL SUSPENSION (NYSTATIN ORAL SUSPENSION) [Concomitant]
  10. LEUCOVORIN (FOLINIC ACID) [Concomitant]

REACTIONS (4)
  - Febrile neutropenia [None]
  - Anaemia [None]
  - Thrombocytopenia [None]
  - Neutropenia [None]
